FAERS Safety Report 8000384-1 (Version None)
Quarter: 2011Q4

REPORT INFORMATION
  Report Type: 
  Country: None (occurrence: None)
  Receive Date: 20111216
  Receipt Date: 20111208
  Transmission Date: 20120403
  Serious: Yes (Life-Threatening)
  Sender: FDA-Public Use
  Company Number: 2011MA017562

PATIENT
  Age: 29 Year
  Sex: Male

DRUGS (5)
  1. OLANZAPINE [Concomitant]
  2. AMOXICILLIN [Concomitant]
  3. ACETAMINOPHEN [Concomitant]
  4. ACETAMINOPHEN AND CODEINE PHOSPHATE [Suspect]
     Route: 048
     Dates: start: 20111129
  5. METHADONE HCL [Concomitant]

REACTIONS (1)
  - THYROID CANCER [None]
